FAERS Safety Report 6228020-5 (Version None)
Quarter: 2009Q2

REPORT INFORMATION
  Report Type: 
  Country: None (occurrence: None)
  Receive Date: 20090612
  Receipt Date: 20090602
  Transmission Date: 20091009
  Serious: Yes (Hospitalization)
  Sender: FDA-Public Use
  Company Number: CA-ABBOTT-09P-028-0569340-01

PATIENT
  Sex: Male

DRUGS (4)
  1. HUMIRA [Suspect]
     Indication: CROHN'S DISEASE
     Route: 058
     Dates: start: 20080516, end: 20080919
  2. DILAUDID [Concomitant]
     Indication: PAIN
     Dates: start: 20070601
  3. VITAMIN B-12 [Concomitant]
     Indication: VITAMIN B12 DECREASED
     Dates: start: 19960101
  4. HYDROMORPHONE HYDROCHLORIDE [Concomitant]
     Indication: PAIN
     Dates: start: 20070601

REACTIONS (1)
  - SMALL INTESTINAL OBSTRUCTION [None]
